FAERS Safety Report 7989057-9 (Version None)
Quarter: 2011Q4

REPORT INFORMATION
  Report Type: 
  Country: None (occurrence: None)
  Receive Date: 20111219
  Receipt Date: 20111201
  Transmission Date: 20120403
  Serious: No
  Sender: FDA-Public Use
  Company Number: US-BAYER-2011-120295

PATIENT
  Age: 22 Year
  Sex: Female

DRUGS (2)
  1. MIRENA [Suspect]
     Indication: CONTRACEPTION
     Dosage: 20 ?G/D, CONT
     Route: 015
     Dates: start: 20110919, end: 20110919
  2. MIRENA [Suspect]
     Dosage: 20 ?G/D, CONT
     Route: 015
     Dates: start: 20110919

REACTIONS (3)
  - ABDOMINAL PAIN LOWER [None]
  - DEVICE DIFFICULT TO USE [None]
  - PROCEDURAL PAIN [None]
